FAERS Safety Report 16964240 (Version 1)
Quarter: 2019Q4

REPORT INFORMATION
  Report Type: Spontaneous
  Country: US (occurrence: US)
  Receive Date: 20191025
  Receipt Date: 20191025
  Transmission Date: 20200122
  Serious: Yes (Life-Threatening, Hospitalization)
  Sender: FDA-Public Use
  Company Number: None

PATIENT
  Age: 50 Year
  Sex: Male
  Weight: 73 kg

DRUGS (2)
  1. HEPARIN [Suspect]
     Active Substance: HEPARIN SODIUM
     Indication: ACUTE MYOCARDIAL INFARCTION
     Dosage: ?          OTHER FREQUENCY:CONTINUOUS 900 U/H;?
     Route: 041
     Dates: start: 20191004, end: 20191005
  2. HEPARIN [Suspect]
     Active Substance: HEPARIN SODIUM
     Indication: ATRIAL FIBRILLATION
     Dosage: ?          OTHER FREQUENCY:CONTINUOUS 900 U/H;?
     Route: 041
     Dates: start: 20191004, end: 20191005

REACTIONS (3)
  - Craniotomy [None]
  - Ventricular drainage [None]
  - Haemorrhagic cerebral infarction [None]

NARRATIVE: CASE EVENT DATE: 20191006
